FAERS Safety Report 13892583 (Version 1)
Quarter: 2017Q3

REPORT INFORMATION
  Report Type: Spontaneous
  Country: US (occurrence: US)
  Receive Date: 20170822
  Receipt Date: 20170822
  Transmission Date: 20171127
  Serious: No
  Sender: FDA-Public Use
  Company Number: US-PFIZER INC-2017360478

PATIENT
  Age: 23 Year
  Sex: Female
  Weight: 82 kg

DRUGS (1)
  1. GABAPENTIN. [Suspect]
     Active Substance: GABAPENTIN
     Indication: FIBROMYALGIA
     Dosage: 300 MG, 2X/DAY, ONCE IN AM AND ONCE IN AFTERNOON
     Route: 048
     Dates: end: 201703

REACTIONS (1)
  - Drug ineffective for unapproved indication [Recovered/Resolved]
